FAERS Safety Report 25167014 (Version 2)
Quarter: 2025Q2

REPORT INFORMATION
  Report Type: Spontaneous
  Country: US (occurrence: US)
  Receive Date: 20250407
  Receipt Date: 20250509
  Transmission Date: 20250716
  Serious: No
  Sender: ROCHE
  Company Number: US-ROCHE-10000247498

PATIENT
  Sex: Female

DRUGS (12)
  1. ERIVEDGE [Suspect]
     Active Substance: VISMODEGIB
     Indication: Basal cell carcinoma
     Route: 048
     Dates: start: 202501
  2. ALBUTEROL [Concomitant]
     Active Substance: ALBUTEROL
  3. ELIQUIS [Concomitant]
     Active Substance: APIXABAN
  4. ESCITALOPRAM [Concomitant]
     Active Substance: ESCITALOPRAM OXALATE
  5. IPRATROPIUM [Concomitant]
     Active Substance: IPRATROPIUM
  6. LANSOPRAZOLE [Concomitant]
     Active Substance: LANSOPRAZOLE
  7. LOSARTAN [Concomitant]
     Active Substance: LOSARTAN
  8. METOPROLOL [Concomitant]
     Active Substance: METOPROLOL
  9. ROSUVASTATIN [Concomitant]
     Active Substance: ROSUVASTATIN
  10. TORSEMIDE [Concomitant]
     Active Substance: TORSEMIDE
  11. TRAMADOL [Concomitant]
     Active Substance: TRAMADOL
  12. VITAMIN D3 [Concomitant]
     Active Substance: CHOLECALCIFEROL

REACTIONS (8)
  - Ageusia [Not Recovered/Not Resolved]
  - Anosmia [Not Recovered/Not Resolved]
  - Muscle spasms [Not Recovered/Not Resolved]
  - Fatigue [Not Recovered/Not Resolved]
  - Alopecia [Not Recovered/Not Resolved]
  - Asthenia [Not Recovered/Not Resolved]
  - Hypogeusia [Not Recovered/Not Resolved]
  - Hyposmia [Not Recovered/Not Resolved]
